FAERS Safety Report 21281145 (Version 1)
Quarter: 2022Q3

REPORT INFORMATION
  Report Type: Spontaneous
  Country: US (occurrence: US)
  Receive Date: 20220901
  Receipt Date: 20220901
  Transmission Date: 20221027
  Serious: Yes (Hospitalization)
  Sender: FDA-Public Use
  Company Number: US-FreseniusKabi-FK202211782

PATIENT
  Age: 50 Year
  Sex: Male
  Weight: 92.5 kg

DRUGS (1)
  1. GENTAMICIN SULFATE [Suspect]
     Active Substance: GENTAMICIN SULFATE
     Indication: Catheter site infection
     Dosage: ONCE
     Route: 042
     Dates: start: 20220817, end: 20220817

REACTIONS (3)
  - Angina pectoris [Unknown]
  - Hyporesponsive to stimuli [Unknown]
  - Unresponsive to stimuli [Unknown]

NARRATIVE: CASE EVENT DATE: 20220817
